FAERS Safety Report 12800186 (Version 2)
Quarter: 2016Q4

REPORT INFORMATION
  Report Type: Spontaneous
  Country: NL (occurrence: NL)
  Receive Date: 20160930
  Receipt Date: 20161005
  Transmission Date: 20170207
  Serious: Yes (Life-Threatening, Hospitalization)
  Sender: FDA-Public Use
  Company Number: NL-PFIZER INC-2016452866

PATIENT
  Age: 66 Year
  Sex: Male
  Weight: 70 kg

DRUGS (14)
  1. ATORVASTATIN CALCIUM. [Suspect]
     Active Substance: ATORVASTATIN CALCIUM
     Indication: HYPERCHOLESTEROLAEMIA
     Dosage: 1 DF (80 MG), DAILY
     Route: 048
     Dates: start: 20160613, end: 20160727
  2. AMIODARONE HCL [Interacting]
     Active Substance: AMIODARONE HYDROCHLORIDE
     Indication: ATRIAL FIBRILLATION
     Dosage: 1 DF (200 MG), DAILY
     Route: 048
     Dates: start: 20160519
  3. CLOPIDOGREL [Concomitant]
     Active Substance: CLOPIDOGREL BISULFATE
     Dosage: 75 MG, 1X/DAY
     Route: 048
     Dates: start: 20160613
  4. BISOPROLOL [Concomitant]
     Active Substance: BISOPROLOL
     Dosage: 10 MG, 1X/DAY
     Route: 048
     Dates: start: 20160613
  5. ALLOPURINOL. [Concomitant]
     Active Substance: ALLOPURINOL
     Dosage: 75 MG, 1X/DAY
     Route: 048
     Dates: start: 20160613, end: 20160727
  6. DANAZOL. [Interacting]
     Active Substance: DANAZOL
     Indication: APLASTIC ANAEMIA
     Dosage: 1 DF (100 MG), DAILY
     Route: 048
     Dates: start: 20141027, end: 20160727
  7. DURATEARS [Concomitant]
     Active Substance: MINERAL OIL EMULSION\PETROLATUM
     Dosage: 1 DF, AS NEEDED
     Route: 047
     Dates: start: 20140120, end: 20160727
  8. FUROSEMIDE. [Concomitant]
     Active Substance: FUROSEMIDE
     Dosage: 40 MG, 1X/DAY
     Route: 048
     Dates: start: 20160613, end: 20160727
  9. ACETYLSALICYLZUUR [Concomitant]
     Active Substance: ASPIRIN
     Dosage: 80 MG, 1X/DAY
     Route: 048
     Dates: start: 20160613
  10. ALENDRONINEZUUR [Concomitant]
     Dosage: 80 MG, 1X/DAY
     Route: 048
     Dates: start: 20140114, end: 20160727
  11. CALCI CHEW D3 [Concomitant]
     Active Substance: CALCIUM CARBONATE\CHOLECALCIFEROL
     Dosage: 1 DF (1000MG/ 800IU), 1X/DAY
     Route: 048
     Dates: start: 20131210, end: 20160727
  12. GLICLAZIDE [Concomitant]
     Active Substance: GLICLAZIDE
     Dosage: 80 MG, 1X/DAY
     Route: 048
     Dates: start: 20160613, end: 20160727
  13. FENPROCOUMON [Concomitant]
     Active Substance: PHENPROCOUMON
     Dosage: 1 DF, 1X/DAY, ACCORDING SCHEDULE
     Route: 048
     Dates: start: 20160613
  14. PANTOPRAZOL [Concomitant]
     Active Substance: PANTOPRAZOLE SODIUM
     Dosage: 20 MG, 1X/DAY
     Route: 048
     Dates: start: 20160613, end: 20160730

REACTIONS (2)
  - Drug interaction [Recovering/Resolving]
  - Rhabdomyolysis [Recovering/Resolving]

NARRATIVE: CASE EVENT DATE: 20160725
